FAERS Safety Report 7190510-9 (Version None)
Quarter: 2010Q4

REPORT INFORMATION
  Report Type: 
  Country: None (occurrence: None)
  Receive Date: 20101223
  Receipt Date: 20101220
  Transmission Date: 20110411
  Serious: Yes (Other)
  Sender: FDA-Public Use
  Company Number: BR-ELI_LILLY_AND_COMPANY-BR201012005151

PATIENT
  Sex: Female

DRUGS (3)
  1. HUMULIN N [Suspect]
     Dosage: 40 IU, EACH MORNING
     Route: 065
  2. HUMULIN N [Suspect]
     Dosage: 40 IU, EACH EVENING
     Route: 065
  3. HUMALOG [Suspect]
     Dosage: 8 IU, AS NEEDED
     Route: 065

REACTIONS (4)
  - ARTHROPATHY [None]
  - DRUG INEFFECTIVE [None]
  - FALL [None]
  - LIGAMENT RUPTURE [None]
